FAERS Safety Report 4840137-6 (Version None)
Quarter: 2005Q4

REPORT INFORMATION
  Report Type: 
  Country: None (occurrence: None)
  Receive Date: 20051125
  Receipt Date: 20051115
  Transmission Date: 20060501
  Serious: Yes (Death)
  Sender: FDA-Public Use
  Company Number: 05H-163-0303450-00

PATIENT
  Age: 74 Year
  Sex: Male

DRUGS (1)
  1. MORPHINE SULFATE INJ [Suspect]
     Indication: PROCEDURAL PAIN
     Dosage: 1 MG/ML, LOCKOUT 8 MIN NO 4 HR LIMIT, INTRAVENOUS
     Route: 042
     Dates: start: 20051024, end: 20051026

REACTIONS (1)
  - CARDIO-RESPIRATORY ARREST [None]
